FAERS Safety Report 19020618 (Version 1)
Quarter: 2021Q1

REPORT INFORMATION
  Report Type: Spontaneous
  Country: US (occurrence: US)
  Receive Date: 20210317
  Receipt Date: 20210317
  Transmission Date: 20210420
  Serious: No
  Sender: FDA-Public Use
  Company Number: US-ORGANON-2101USA001730

PATIENT
  Sex: Female
  Weight: 143.31 kg

DRUGS (2)
  1. NEXPLANON [Suspect]
     Active Substance: ETONOGESTREL
     Dosage: 68 MILLIGRAM ONCE
     Route: 059
     Dates: start: 20190416
  2. NEXPLANON [Suspect]
     Active Substance: ETONOGESTREL
     Dosage: 1 DOSAGE FORM
     Route: 059
     Dates: end: 20190416

REACTIONS (3)
  - Device expulsion [Recovered/Resolved]
  - No adverse event [Unknown]
  - Complication associated with device [Recovered/Resolved]
